FAERS Safety Report 13398107 (Version 2)
Quarter: 2017Q2

REPORT INFORMATION
  Report Type: Spontaneous
  Country: JP (occurrence: JP)
  Receive Date: 20170403
  Receipt Date: 20170524
  Transmission Date: 20170830
  Serious: Yes (Other)
  Sender: FDA-Public Use
  Company Number: JP-PFIZER INC-2017140384

PATIENT
  Age: 64 Year
  Sex: Female

DRUGS (4)
  1. ETIZOLAM [Suspect]
     Active Substance: ETIZOLAM
     Indication: SPINAL OSTEOARTHRITIS
     Dosage: 0.5 MG, DAILY
     Route: 048
     Dates: start: 20170309, end: 20170313
  2. MOHRUS [Suspect]
     Active Substance: KETOPROFEN
     Indication: PERIARTHRITIS
     Dosage: 1 SHEET DAILY
     Route: 062
     Dates: start: 20170309, end: 20170313
  3. CELECOX [Suspect]
     Active Substance: CELECOXIB
     Indication: PERIARTHRITIS
     Dosage: 200 MG, 2X/DAY
     Route: 048
     Dates: start: 20170302, end: 20170313
  4. LYRICA [Suspect]
     Active Substance: PREGABALIN
     Indication: SPINAL OSTEOARTHRITIS
     Dosage: 75 MG, DAILY
     Route: 048
     Dates: start: 20170309, end: 20170313

REACTIONS (6)
  - Erythema multiforme [Recovered/Resolved]
  - C-reactive protein increased [Unknown]
  - Red blood cell count increased [Unknown]
  - Product use in unapproved indication [Unknown]
  - Lymphocyte percentage decreased [Unknown]
  - Neutrophil percentage increased [Unknown]

NARRATIVE: CASE EVENT DATE: 20170309
